FAERS Safety Report 11693294 (Version 1)
Quarter: 2015Q4

REPORT INFORMATION
  Report Type: Spontaneous
  Country: US (occurrence: None)
  Receive Date: 20151102
  Receipt Date: 20151102
  Transmission Date: 20160304
  Serious: Yes (Other)
  Sender: FDA-Public Use
  Company Number: None

PATIENT
  Age: 55 Year
  Sex: Female
  Weight: 79.38 kg

DRUGS (9)
  1. HYDROXYCHLOROQUINE [Concomitant]
     Active Substance: HYDROXYCHLOROQUINE
  2. PRAVASTATIN [Concomitant]
     Active Substance: PRAVASTATIN\PRAVASTATIN SODIUM
  3. XELJANZ [Suspect]
     Active Substance: TOFACITINIB CITRATE
     Indication: RHEUMATOID ARTHRITIS
     Dosage: 1 TABLET  TWICE DAILY  ORAL
     Route: 048
     Dates: start: 20150315, end: 20150918
  4. ETODOLAC. [Concomitant]
     Active Substance: ETODOLAC
  5. LEXAPRO [Concomitant]
     Active Substance: ESCITALOPRAM OXALATE
  6. NIACIN. [Concomitant]
     Active Substance: NIACIN
  7. GABAPENTIN. [Concomitant]
     Active Substance: GABAPENTIN
  8. SYNTHROID [Concomitant]
     Active Substance: LEVOTHYROXINE SODIUM
  9. VIT. D, FOLIC ACID, VIT. B - COMPLEX [Concomitant]
     Active Substance: FOLIC ACID\VITAMINS

REACTIONS (8)
  - Tremor [None]
  - Negative thoughts [None]
  - Panic attack [None]
  - Anxiety [None]
  - Depression [None]
  - Paranoia [None]
  - Anger [None]
  - Feelings of worthlessness [None]

NARRATIVE: CASE EVENT DATE: 20150315
